FAERS Safety Report 8814172 (Version 1)
Quarter: 2012Q4

REPORT INFORMATION
  Report Type: Spontaneous
  Country: US (occurrence: None)
  Receive Date: 20120926
  Receipt Date: 20120926
  Transmission Date: 20130627
  Serious: Yes (Hospitalization)
  Sender: FDA-Public Use
  Company Number: None

PATIENT
  Age: 50 Year
  Sex: Male
  Weight: 64 kg

DRUGS (11)
  1. CEFTAROLINE [Suspect]
     Indication: SKIN INFECTION
     Route: 042
     Dates: start: 20120826, end: 20120915
  2. CEFTAROLINE [Suspect]
     Indication: SOFT TISSUE INFECTION
     Route: 042
     Dates: start: 20120826, end: 20120915
  3. TYLENOL [Concomitant]
  4. GABAPENTIN [Concomitant]
  5. HEPARIN [Concomitant]
  6. HCTZ [Concomitant]
  7. HYDROMORPHONE [Concomitant]
  8. LISINOPRIL [Concomitant]
  9. NICOTINE PATCH [Concomitant]
  10. MULTIVITAMIN [Concomitant]
  11. SALINE FLUSHES [Concomitant]

REACTIONS (10)
  - Rash erythematous [None]
  - Rash generalised [None]
  - Rash maculo-papular [None]
  - Skin hypertrophy [None]
  - Hypoaesthesia oral [None]
  - Tongue exfoliation [None]
  - Sepsis [None]
  - Staphylococcal infection [None]
  - Cellulitis [None]
  - Stevens-Johnson syndrome [None]
